FAERS Safety Report 14556530 (Version 1)
Quarter: 2018Q1

REPORT INFORMATION
  Report Type: Spontaneous
  Country: US (occurrence: US)
  Receive Date: 20180219
  Receipt Date: 20180219
  Transmission Date: 20180509
  Serious: No
  Sender: FDA-Public Use
  Company Number: None

PATIENT
  Age: 62 Year
  Sex: Female

DRUGS (1)
  1. PROLIA [Suspect]
     Active Substance: DENOSUMAB
     Indication: OSTEOPOROSIS
     Dosage: 60MG/ML ONCE EVERY 6 MONTHS SUBCUTANEOUSLY
     Route: 058
     Dates: start: 20160717

REACTIONS (3)
  - Loose tooth [None]
  - Pain in jaw [None]
  - Tooth loss [None]

NARRATIVE: CASE EVENT DATE: 20180219
